FAERS Safety Report 6144065-8 (Version None)
Quarter: 2009Q2

REPORT INFORMATION
  Report Type: 
  Country: None (occurrence: None)
  Receive Date: 20090406
  Receipt Date: 20090324
  Transmission Date: 20091009
  Serious: No
  Sender: FDA-Public Use
  Company Number: US-BAYER-200916557NA

PATIENT
  Sex: Male

DRUGS (1)
  1. AVELOX [Suspect]
     Indication: RESPIRATORY DISORDER

REACTIONS (8)
  - ABASIA [None]
  - ARTHRALGIA [None]
  - CHEST DISCOMFORT [None]
  - JOINT SWELLING [None]
  - LYMPH NODE PAIN [None]
  - OEDEMA PERIPHERAL [None]
  - SKIN DISCOLOURATION [None]
  - TENDON PAIN [None]
